FAERS Safety Report 9571520 (Version 3)
Quarter: 2019Q2

REPORT INFORMATION
  Report Type: Spontaneous
  Country: SE (occurrence: SE)
  Receive Date: 20131001
  Receipt Date: 20190528
  Transmission Date: 20190711
  Serious: Yes (Disabling, Other)
  Sender: FDA-Public Use
  Company Number: SE-ASTRAZENECA-2013SE71095

PATIENT
  Age: 707 Month
  Sex: Female
  Weight: 60 kg

DRUGS (11)
  1. SEROQUEL [Suspect]
     Active Substance: QUETIAPINE FUMARATE
     Indication: DEPRESSION
     Route: 048
     Dates: start: 20110901, end: 201302
  2. SEROQUEL [Suspect]
     Active Substance: QUETIAPINE FUMARATE
     Indication: BIPOLAR DISORDER
     Dosage: 300 MG ONCE (DOUBLE DOSE) UNKNOWN
     Route: 048
  3. CIPRALEX [Concomitant]
     Active Substance: ESCITALOPRAM OXALATE
     Indication: DEPRESSION
     Dates: end: 20130215
  4. IMOVANE [Concomitant]
     Active Substance: ZOPICLONE
     Indication: SLEEP DISORDER
  5. SEROQUEL [Suspect]
     Active Substance: QUETIAPINE FUMARATE
     Indication: BIPOLAR DISORDER
     Route: 048
     Dates: start: 20110901, end: 201302
  6. SEROQUEL [Suspect]
     Active Substance: QUETIAPINE FUMARATE
     Indication: DEPRESSION
     Dosage: REDUCED DOSE
     Route: 048
  7. SEROQUEL [Suspect]
     Active Substance: QUETIAPINE FUMARATE
     Indication: DEPRESSION
     Dosage: 150.0MG UNKNOWN
     Route: 048
  8. PROPAVAN [Suspect]
     Active Substance: PROPIOMAZINE
     Indication: SLEEP DISORDER
     Route: 065
     Dates: start: 20120430, end: 20121217
  9. SEROQUEL [Suspect]
     Active Substance: QUETIAPINE FUMARATE
     Indication: BIPOLAR DISORDER
     Dosage: REDUCED DOSE
     Route: 048
  10. SEROQUEL [Suspect]
     Active Substance: QUETIAPINE FUMARATE
     Indication: BIPOLAR DISORDER
     Dosage: 150.0MG UNKNOWN
     Route: 048
  11. SEROQUEL [Suspect]
     Active Substance: QUETIAPINE FUMARATE
     Indication: DEPRESSION
     Dosage: 300 MG ONCE (DOUBLE DOSE) UNKNOWN
     Route: 048

REACTIONS (4)
  - Camptocormia [Recovered/Resolved with Sequelae]
  - Dystonia [Recovered/Resolved with Sequelae]
  - Bone disorder [Not Recovered/Not Resolved]
  - Back pain [Recovered/Resolved with Sequelae]

NARRATIVE: CASE EVENT DATE: 201110
